FAERS Safety Report 4322426-7 (Version None)
Quarter: 2004Q1

REPORT INFORMATION
  Report Type: 
  Country: None (occurrence: None)
  Receive Date: 20040319
  Receipt Date: 20040311
  Transmission Date: 20041129
  Serious: Yes (Hospitalization)
  Sender: FDA-Public Use
  Company Number: HQWYE748711MAR04

PATIENT
  Age: 89 Year
  Sex: Female

DRUGS (10)
  1. CORDARONE [Suspect]
     Dosage: 200 MG 5 DAYS PER WEEK
     Route: 048
  2. DISCOTRINE (GLYCERIL TRINITRATE) [Concomitant]
  3. VASTAREL (TRIMETAZIDINE HYDROCHLORIDE) [Concomitant]
  4. AMLODIPINE BESYLATE [Concomitant]
  5. LODOZ (BISOPROLOL/HYDROCHLOROTHIAZIDE) [Concomitant]
  6. MICARDIS [Concomitant]
  7. KARDEGIC (ACETYLSALICYLATE LYSINE) [Concomitant]
  8. NEXIUM [Concomitant]
  9. FERROUS SULFATE TAB [Concomitant]
  10. ZOCOR [Concomitant]

REACTIONS (2)
  - BRONCHIAL INFECTION [None]
  - HYPOTHYROIDISM [None]
